FAERS Safety Report 5287532-1 (Version None)
Quarter: 2007Q1

REPORT INFORMATION
  Report Type: 
  Country: None (occurrence: None)
  Receive Date: 20070116
  Receipt Date: 20060927
  Transmission Date: 20070707
  Serious: No
  Sender: FDA-Public Use
  Company Number: 2006SP003454

PATIENT
  Sex: Female

DRUGS (1)
  1. LUNESTA [Suspect]
     Dosage: ORAL
     Route: 048

REACTIONS (2)
  - DRUG INEFFECTIVE [None]
  - INSOMNIA [None]
